FAERS Safety Report 9337774 (Version 2)
Quarter: 2014Q1

REPORT INFORMATION
  Report Type: Spontaneous
  Country: AT (occurrence: AT)
  Receive Date: 20130607
  Receipt Date: 20140214
  Transmission Date: 20141002
  Serious: Yes (Other)
  Sender: FDA-Public Use
  Company Number: AT-PFIZER INC-2013170809

PATIENT
  Age: 65 Year
  Sex: Female

DRUGS (29)
  1. EFECTIN ER [Suspect]
     Dosage: 150 MG, UNK
     Dates: start: 201210, end: 20130311
  2. EFECTIN ER [Suspect]
     Dosage: 225 MG, UNK
     Dates: start: 20130312, end: 20130423
  3. EFECTIN ER [Suspect]
     Dosage: 150 MG, UNK
     Dates: start: 20130424, end: 20130506
  4. EFECTIN ER [Suspect]
     Dosage: 75 MG, UNK
     Dates: start: 20130507, end: 20130511
  5. LAMICTAL [Suspect]
     Dosage: 200 MG, UNK
     Dates: start: 201210, end: 20130417
  6. LAMICTAL [Suspect]
     Dosage: 100 MG, UNK
     Dates: start: 20130418, end: 20130422
  7. SEROQUEL XR [Suspect]
     Dosage: 200 MG, UNK
     Dates: start: 20130307, end: 20130310
  8. SEROQUEL XR [Suspect]
     Dosage: 300 MG, UNK
     Dates: start: 20130311, end: 20130314
  9. SEROQUEL XR [Suspect]
     Dosage: 400 MG, UNK
     Dates: start: 20130314, end: 20130514
  10. PLAVIX [Suspect]
     Dosage: 75 MG, UNK
     Dates: start: 20130325
  11. ACEMIN [Suspect]
     Indication: HYPERTENSION
     Dosage: 2.5 MG, UNK
     Dates: start: 20130324
  12. PANTOLOC [Suspect]
     Dosage: 20 MG, UNK
     Dates: start: 2012, end: 20130329
  13. PANTOLOC [Suspect]
     Dosage: 40 MG, UNK
     Dates: start: 20130330
  14. NOCUTIL [Suspect]
     Dosage: 0.1 MG, UNK
     Dates: start: 2012
  15. FOLSAN [Suspect]
     Dosage: 5 MG, UNK
     Dates: start: 2012
  16. DEPAKINE CHRONO [Suspect]
     Dosage: 500 MG, UNK
     Dates: start: 20130404, end: 20130407
  17. DEPAKINE CHRONO [Suspect]
     Dosage: 750 MG, UNK
     Dates: start: 20130408, end: 20130410
  18. DEPAKINE CHRONO [Suspect]
     Dosage: 500 MG, UNK
     Dates: start: 20130411, end: 20130425
  19. ZOLDEM [Concomitant]
     Dosage: 10 MG, UNK
     Dates: start: 20130318, end: 20130513
  20. DALACIN [Concomitant]
     Dosage: 1000 MG, UNK
     Dates: start: 20130418, end: 20130424
  21. ANTIBIOPHILUS [Concomitant]
     Dosage: 2 DF, UNK
     Dates: start: 20130418, end: 20130424
  22. SORTIS [Concomitant]
     Dosage: 20 MG, UNK
     Dates: start: 2012, end: 20130321
  23. SORTIS [Concomitant]
     Dosage: 40 MG, UNK
     Dates: start: 20130322, end: 20130324
  24. SORTIS [Concomitant]
     Dosage: 80 MG, UNK
     Dates: start: 20130325
  25. NEUROBION FORTE [Concomitant]
     Dosage: 2 DF, UNK
     Dates: start: 2012
  26. MAGNOSOLV [Concomitant]
     Dosage: 2 DF, UNK
     Dates: start: 2012
  27. NITROLINGUAL-PUMPSPRAY [Concomitant]
     Dosage: 1 DF, AS NEEDED
     Dates: start: 2012
  28. OVESTIN [Concomitant]
     Dosage: UNK
     Dates: start: 20130415
  29. TANTUM ROSA [Concomitant]
     Dosage: UNK
     Dates: start: 20130415

REACTIONS (7)
  - Cerebral atrophy [Unknown]
  - Embolism arterial [Unknown]
  - Atrophic vulvovaginitis [Unknown]
  - Dysgeusia [Recovering/Resolving]
  - Dry mouth [Recovering/Resolving]
  - Nausea [Recovering/Resolving]
  - Vaginal discharge [Unknown]
